FAERS Safety Report 19077489 (Version 1)
Quarter: 2021Q1

REPORT INFORMATION
  Report Type: Spontaneous
  Country: US (occurrence: US)
  Receive Date: 20210331
  Receipt Date: 20210331
  Transmission Date: 20210420
  Serious: Yes (Other)
  Sender: FDA-Public Use
  Company Number: NVSC2021US066649

PATIENT
  Age: 55 Year
  Sex: Female

DRUGS (1)
  1. COSENTYX [Suspect]
     Active Substance: SECUKINUMAB
     Indication: PSORIASIS
     Dosage: 300 MG, Q WEEK FOR FIVE WEEKS AND THEN Q4 WEEKS
     Route: 058
     Dates: start: 20210208

REACTIONS (3)
  - Oral herpes [Unknown]
  - Oral candidiasis [Unknown]
  - Oropharyngeal blistering [Unknown]

NARRATIVE: CASE EVENT DATE: 20210319
